FAERS Safety Report 16423777 (Version 1)
Quarter: 2019Q2

REPORT INFORMATION
  Report Type: Other
  Country: BE (occurrence: BE)
  Receive Date: 20190613
  Receipt Date: 20190613
  Transmission Date: 20190711
  Serious: Yes (Life-Threatening, Disabling, Other)
  Sender: FDA-Public Use
  Company Number: BE-VISTAPHARM, INC.-VER201906-000363

PATIENT
  Age: 27 Year
  Sex: Male

DRUGS (11)
  1. DIAZEPAM. [Concomitant]
     Active Substance: DIAZEPAM
     Indication: ANTICONVULSANT DRUG LEVEL
     Dosage: 40 MG OVER 24 H, INFUSION
  2. LEVETIRACETAM. [Concomitant]
     Active Substance: LEVETIRACETAM
     Indication: ANTICONVULSANT DRUG LEVEL
     Dosage: 1 G
     Route: 042
  3. MIDAZOLAM [Concomitant]
     Active Substance: MIDAZOLAM HYDROCHLORIDE
     Indication: ANTICONVULSANT DRUG LEVEL
     Dosage: 15 MG OVER 12 H
  4. PROPOFOL. [Concomitant]
     Active Substance: PROPOFOL
     Dosage: 3 MG/KG/H
  5. PHENYTOIN. [Suspect]
     Active Substance: PHENYTOIN
     Dosage: DAY 11: 3?100?MG; DAY 12: 2?100?MG; DAY 13:1?100?MG
  6. VALPROIC ACID. [Concomitant]
     Active Substance: VALPROIC ACID
     Indication: ANTICONVULSANT DRUG LEVEL
     Dosage: 1200 MG OVER 24 H
     Route: 042
  7. PHENYTOIN. [Suspect]
     Active Substance: PHENYTOIN
     Indication: SEIZURE
     Dosage: 750 MG
     Route: 042
  8. PHENYTOIN. [Suspect]
     Active Substance: PHENYTOIN
     Dosage: 250 MG
     Route: 042
  9. LEVETIRACETAM. [Concomitant]
     Active Substance: LEVETIRACETAM
     Dosage: 1 G
     Route: 042
  10. PROPOFOL. [Concomitant]
     Active Substance: PROPOFOL
     Indication: SEDATION
     Dosage: 2 MG/KG/H
  11. LEVETIRACETAM. [Concomitant]
     Active Substance: LEVETIRACETAM
     Dosage: 1 G
     Route: 042

REACTIONS (1)
  - Rhabdomyolysis [Unknown]
